FAERS Safety Report 16654448 (Version 1)
Quarter: 2019Q3

REPORT INFORMATION
  Report Type: Other
  Country: BE (occurrence: BE)
  Receive Date: 20190731
  Receipt Date: 20190731
  Transmission Date: 20191004
  Serious: Yes (Other)
  Sender: FDA-Public Use
  Company Number: BE-CELLTRION INC.-2019BE023123

PATIENT

DRUGS (1)
  1. INFLIXIMAB (UNKNOWN) [Suspect]
     Active Substance: INFLIXIMAB
     Indication: CROHN^S DISEASE
     Dosage: 10 MG/KG, EVERY 4 WEEKS (LAST ADMINISTRATION DATE:2019)
     Route: 042

REACTIONS (5)
  - Product use issue [Unknown]
  - Drug ineffective [Unknown]
  - Crohn^s disease [Unknown]
  - Off label use [Unknown]
  - Abscess [Unknown]
